FAERS Safety Report 9473633 (Version 2)
Quarter: 2013Q3

REPORT INFORMATION
  Report Type: Spontaneous
  Country: US (occurrence: US)
  Receive Date: 20130823
  Receipt Date: 20130823
  Transmission Date: 20140515
  Serious: No
  Sender: FDA-Public Use
  Company Number: US-BRISTOL-MYERS SQUIBB COMPANY-16770059

PATIENT
  Age: 71 Year
  Sex: Female
  Weight: 47 kg

DRUGS (1)
  1. SPRYCEL [Suspect]
     Indication: CHRONIC MYELOID LEUKAEMIA
     Dosage: RX# P29042

REACTIONS (5)
  - Splenomegaly [Unknown]
  - Abdominal pain [Unknown]
  - Dysgeusia [Unknown]
  - Fatigue [Unknown]
  - Platelet count decreased [Unknown]
